FAERS Safety Report 10073515 (Version 1)
Quarter: 2014Q2

REPORT INFORMATION
  Report Type: Report from Study
  Country: GB (occurrence: GB)
  Receive Date: 20140411
  Receipt Date: 20140411
  Transmission Date: 20141212
  Serious: Yes (Other)
  Sender: FDA-Public Use
  Company Number: GB-ABBVIE-14P-167-1221524-00

PATIENT
  Age: 49 Year
  Sex: Male
  Weight: 62.4 kg

DRUGS (1)
  1. HUMIRA [Suspect]
     Indication: ANKYLOSING SPONDYLITIS
     Dosage: EVERY 2 WEEKS
     Route: 050
     Dates: start: 20140215

REACTIONS (1)
  - Infarction [Recovering/Resolving]
